FAERS Safety Report 16794283 (Version 3)
Quarter: 2019Q4

REPORT INFORMATION
  Report Type: Spontaneous
  Country: US (occurrence: US)
  Receive Date: 20190911
  Receipt Date: 20191105
  Transmission Date: 20200122
  Serious: Yes (Other)
  Sender: FDA-Public Use
  Company Number: US-GLENMARK PHARMACEUTICALS-2019GMK043031

PATIENT

DRUGS (1)
  1. DESMOPRESSIN ACETATE TABLETS, 0.1MG [Suspect]
     Active Substance: DESMOPRESSIN ACETATE
     Indication: HYPOPITUITARISM
     Dosage: UNK, BID ((3 IN THE MORNING AND 3 AND A HALF AT NIGHT)
     Route: 048

REACTIONS (4)
  - Urinary incontinence [Recovered/Resolved]
  - Product substitution issue [Unknown]
  - Blood sodium abnormal [Recovered/Resolved]
  - Drug ineffective for unapproved indication [Unknown]
